FAERS Safety Report 20449800 (Version 3)
Quarter: 2022Q1

REPORT INFORMATION
  Report Type: Report from Study
  Country: CN (occurrence: CN)
  Receive Date: 20220209
  Receipt Date: 20220224
  Transmission Date: 20220423
  Serious: Yes (Death)
  Sender: FDA-Public Use
  Company Number: CN-KARYOPHARM-2022KPT000164

PATIENT
  Age: 58 Year
  Sex: Male

DRUGS (15)
  1. SELINEXOR [Suspect]
     Active Substance: SELINEXOR
     Indication: Plasma cell myeloma
     Dosage: 80 MG, WEEKLY
     Route: 048
     Dates: start: 20220125, end: 20220125
  2. DOXORUBICIN [Concomitant]
     Active Substance: DOXORUBICIN
     Indication: Plasma cell myeloma
     Dosage: 60 MG, MONTHLY EVERY 28 DAYS
     Route: 042
     Dates: start: 20220125, end: 20220125
  3. DEXAMETHASONE [Concomitant]
     Active Substance: DEXAMETHASONE
     Indication: Plasma cell myeloma
     Dosage: 40 MG, WEEKLY
     Route: 042
     Dates: start: 20220125, end: 20220125
  4. METHYLCOBALAMIN [Concomitant]
     Active Substance: METHYLCOBALAMIN
     Indication: Nervous system disorder prophylaxis
     Dosage: 1 DOSAGE FORM, TID
     Route: 048
     Dates: start: 20220127, end: 20220202
  5. POTASSIUM CHLORIDE [Concomitant]
     Active Substance: POTASSIUM CHLORIDE
     Indication: Mineral supplementation
     Dosage: 2 DOSAGE FORM, BID
     Route: 048
     Dates: start: 20220127, end: 20220202
  6. THIAMINE [Concomitant]
     Active Substance: THIAMINE
     Indication: Nervous system disorder prophylaxis
     Dosage: 1 DOSAGE FORM, TID
     Route: 048
     Dates: start: 20220127, end: 20220202
  7. HERBALS [Concomitant]
     Active Substance: HERBALS
     Indication: Respiratory disorder prophylaxis
     Dosage: 3 DOSAGE FORM, TID
     Route: 048
     Dates: start: 20220127, end: 20220202
  8. HERBALS [Concomitant]
     Active Substance: HERBALS
     Indication: Renal disorder prophylaxis
  9. VALACYCLOVIR HYDROCHLORIDE [Concomitant]
     Active Substance: VALACYCLOVIR HYDROCHLORIDE
     Indication: Antiviral prophylaxis
     Dosage: 1 DOSAGE FORM, QD
     Route: 048
     Dates: start: 20220127, end: 20220202
  10. BICYCLOL [Concomitant]
     Active Substance: BICYCLOL
     Indication: Hepatobiliary disorder prophylaxis
     Dosage: 1 DOSAGE FORM, TID
     Route: 048
     Dates: start: 20220127, end: 20220202
  11. FU FANG ZAO FAN [Concomitant]
     Indication: White blood cell count decreased
     Dosage: 9 DOSAGE FORM, TID
     Route: 048
     Dates: start: 20220127, end: 20220202
  12. FU FANG ZAO FAN [Concomitant]
     Indication: Platelet count decreased
  13. ONDANSETRON [Concomitant]
     Active Substance: ONDANSETRON
     Indication: Antiemetic supportive care
     Dosage: 1 DOSAGE FORM, QD
     Route: 048
     Dates: start: 20220127, end: 20220202
  14. OLANZAPINE [Concomitant]
     Active Substance: OLANZAPINE
     Indication: Antiemetic supportive care
     Dosage: 0.5 DOSAGE FORM, QD
     Route: 048
     Dates: start: 20220127, end: 20220202
  15. OMEPRAZOLE [Concomitant]
     Active Substance: OMEPRAZOLE
     Indication: Gastrointestinal disorder prophylaxis
     Dosage: 1 DOSAGE FORM, BID
     Route: 048
     Dates: start: 20220127, end: 20220202

REACTIONS (1)
  - Death [Fatal]

NARRATIVE: CASE EVENT DATE: 20220202
